APPROVED DRUG PRODUCT: PROCHLORPERAZINE
Active Ingredient: PROCHLORPERAZINE MALEATE
Strength: EQ 10MG BASE
Dosage Form/Route: TABLET;ORAL
Application: A085178 | Product #001
Applicant: WATSON LABORATORIES INC
Approved: Approved Prior to Jan 1, 1982 | RLD: No | RS: No | Type: DISCN